FAERS Safety Report 11346551 (Version 1)
Quarter: 2015Q3

REPORT INFORMATION
  Report Type: Spontaneous
  Country: US (occurrence: US)
  Receive Date: 20150803
  Receipt Date: 20150803
  Transmission Date: 20151125
  Serious: No
  Sender: FDA-Public Use
  Company Number: US-ELI_LILLY_AND_COMPANY-US201011001494

PATIENT
  Age: 66 Year
  Sex: Female

DRUGS (2)
  1. ZYPREXA [Suspect]
     Active Substance: OLANZAPINE
     Indication: SLEEP DISORDER
     Dosage: 2.5 MG, DAILY (1/D)
  2. TYLENOL                                 /SCH/ [Concomitant]

REACTIONS (4)
  - Wrong technique in product usage process [Unknown]
  - Abnormal dreams [Unknown]
  - Thinking abnormal [Unknown]
  - Off label use [Unknown]
